FAERS Safety Report 23109792 (Version 1)
Quarter: 2023Q4

REPORT INFORMATION
  Report Type: Spontaneous
  Country: CN (occurrence: CN)
  Receive Date: 20231026
  Receipt Date: 20231026
  Transmission Date: 20240109
  Serious: Yes (Other)
  Sender: FDA-Public Use
  Company Number: CN-PFIZER INC-PV202300173878

PATIENT
  Age: 12 Year
  Sex: Male
  Weight: 39.9 kg

DRUGS (6)
  1. VORICONAZOLE [Interacting]
     Active Substance: VORICONAZOLE
     Indication: Prophylaxis
     Dosage: 200 MG, 2X/DAY
     Route: 048
     Dates: start: 20220307, end: 20220310
  2. VORICONAZOLE [Interacting]
     Active Substance: VORICONAZOLE
     Dosage: 100 MG, 2X/DAY
     Route: 048
     Dates: start: 20220311, end: 20220314
  3. CYCLOSPORINE [Interacting]
     Active Substance: CYCLOSPORINE
     Dosage: 0.5 ML, 2X/DAY
     Route: 048
     Dates: start: 20220307, end: 20220310
  4. CYCLOSPORINE [Interacting]
     Active Substance: CYCLOSPORINE
     Dosage: 0.3 ML, 2X/DAY
     Route: 048
     Dates: start: 20220311, end: 20220314
  5. CYCLOSPORINE [Interacting]
     Active Substance: CYCLOSPORINE
     Dosage: 0.5 ML, 2X/DAY
     Route: 048
     Dates: start: 20220315
  6. CEFOPERAZONE\SULBACTAM [Concomitant]
     Active Substance: CEFOPERAZONE\SULBACTAM
     Indication: Anti-infective therapy
     Dosage: 160 MG/KG, 3X/DAY
     Route: 041
     Dates: start: 20220307

REACTIONS (3)
  - Drug interaction [Recovered/Resolved]
  - Drug level increased [Recovered/Resolved]
  - Drug-induced liver injury [Recovered/Resolved]
